FAERS Safety Report 7625188-0 (Version None)
Quarter: 2011Q3

REPORT INFORMATION
  Report Type: 
  Country: None (occurrence: None)
  Receive Date: 20110721
  Receipt Date: 20110624
  Transmission Date: 20111222
  Serious: No
  Sender: FDA-Public Use
  Company Number: US-BAYER-2011-054547

PATIENT
  Age: 54 Year
  Sex: Female
  Weight: 90.703 kg

DRUGS (6)
  1. MULTI-VITAMIN [Concomitant]
  2. ASCORBIC ACID [Concomitant]
  3. BETASERON [Suspect]
     Dosage: 0.25 MG, QOD
     Route: 058
  4. BENICAR [Concomitant]
  5. ASPIRIN [Concomitant]
  6. VITAMIN D [Concomitant]

REACTIONS (1)
  - RASH GENERALISED [None]
